FAERS Safety Report 10589750 (Version 1)
Quarter: 2014Q4

REPORT INFORMATION
  Report Type: Spontaneous
  Country: US (occurrence: None)
  Receive Date: 20141117
  Receipt Date: 20141117
  Transmission Date: 20150529
  Serious: No
  Sender: FDA-Public Use
  Company Number: None

PATIENT
  Sex: Male
  Weight: 72.5 kg

DRUGS (2)
  1. DOCETAXEL. [Suspect]
     Active Substance: DOCETAXEL
     Indication: TONSIL CANCER
     Dosage: 28 MG, DAYS 1 + 8, IV
     Route: 042
     Dates: start: 20141103
  2. RADIATION [Suspect]
     Active Substance: RADIATION THERAPY
     Dosage: RADIATION?BID FOR 14 DAYS

REACTIONS (3)
  - Hypotension [None]
  - Presyncope [None]
  - Loss of consciousness [None]

NARRATIVE: CASE EVENT DATE: 20141103
